FAERS Safety Report 11343409 (Version 1)
Quarter: 2015Q3

REPORT INFORMATION
  Report Type: Spontaneous
  Country: US (occurrence: US)
  Receive Date: 20150806
  Receipt Date: 20150806
  Transmission Date: 20151125
  Serious: No
  Sender: FDA-Public Use
  Company Number: US-B.I. PHARMACEUTICALS,INC./RIDGEFIELD-2015-BI-40453BP

PATIENT
  Sex: Female

DRUGS (1)
  1. COMBIVENT [Suspect]
     Active Substance: ALBUTEROL SULFATE\IPRATROPIUM BROMIDE
     Indication: PRODUCT USED FOR UNKNOWN INDICATION
     Dosage: STRENGTH: 20MCG/100MCG
     Route: 065
     Dates: start: 2011

REACTIONS (4)
  - Impaired driving ability [Unknown]
  - Lower respiratory tract congestion [Unknown]
  - Vestibular disorder [Not Recovered/Not Resolved]
  - Dyspnoea [Unknown]
